FAERS Safety Report 18421863 (Version 1)
Quarter: 2020Q4

REPORT INFORMATION
  Report Type: Spontaneous
  Country: FR (occurrence: FR)
  Receive Date: 20201023
  Receipt Date: 20201023
  Transmission Date: 20210114
  Serious: Yes (Hospitalization, Other)
  Sender: FDA-Public Use
  Company Number: FR-MYLANLABS-2020M1088856

PATIENT
  Age: 71 Year
  Sex: Male
  Weight: 82 kg

DRUGS (14)
  1. IRINOTECAN [Suspect]
     Active Substance: IRINOTECAN
     Dosage: UNK
     Dates: start: 20190507
  2. ONDANSETRON [Concomitant]
     Active Substance: ONDANSETRON
     Indication: PROPHYLAXIS OF NAUSEA AND VOMITING
     Dosage: 8 MG,1 IN 1 D
     Route: 042
     Dates: start: 20190405, end: 20190405
  3. LEUCOVORIN                         /00566701/ [Suspect]
     Active Substance: LEUCOVORIN
     Indication: DUCTAL ADENOCARCINOMA OF PANCREAS
     Dosage: 390 MG, QD
     Route: 042
     Dates: start: 20190405
  4. LEUCOVORIN                         /00566701/ [Suspect]
     Active Substance: LEUCOVORIN
     Dosage: UNK
     Route: 042
     Dates: start: 20190507
  5. MORPHINE [Concomitant]
     Active Substance: MORPHINE
     Indication: BACK PAIN
     Dosage: 1.6 MG/H CONTINOUS 4 MG BOLUS
     Route: 042
     Dates: start: 20190326, end: 20190409
  6. LEUCOVORIN                         /00566701/ [Suspect]
     Active Substance: LEUCOVORIN
     Indication: DUCTAL ADENOCARCINOMA OF PANCREAS
     Dosage: UNK
     Dates: start: 20190423
  7. FOSAPREPITANT [Concomitant]
     Active Substance: FOSAPREPITANT
     Indication: PROPHYLAXIS OF NAUSEA AND VOMITING
     Dosage: 125 MG,1 IN 1 D
     Route: 042
     Dates: start: 20190405, end: 20190405
  8. FLUOROURACIL. [Suspect]
     Active Substance: FLUOROURACIL
     Dosage: UNK
     Dates: start: 20190507
  9. KETOPROFEN. [Concomitant]
     Active Substance: KETOPROFEN
     Indication: BACK PAIN
     Dosage: 100 MG TWICE DAILY
     Route: 048
     Dates: start: 20190326
  10. FLUOROURACIL. [Suspect]
     Active Substance: FLUOROURACIL
     Indication: DUCTAL ADENOCARCINOMA OF PANCREAS
     Dosage: 5500 MILLIGRAM, QD
     Route: 042
     Dates: start: 20190405
  11. ATROPINE. [Concomitant]
     Active Substance: ATROPINE
     Indication: PROPHYLAXIS OF NAUSEA AND VOMITING
     Dosage: 0.25 MG,1 IN 1 D
     Route: 042
     Dates: start: 20190405, end: 20190405
  12. FLUOROURACIL. [Suspect]
     Active Substance: FLUOROURACIL
     Indication: DUCTAL ADENOCARCINOMA OF PANCREAS
     Dosage: UNK
     Dates: start: 20190423
  13. IRINOTECAN [Suspect]
     Active Substance: IRINOTECAN
     Indication: DUCTAL ADENOCARCINOMA OF PANCREAS
     Dosage: UNK UNK, QD
     Dates: start: 20190423
  14. IRINOTECAN HYDROCHLORIDE. [Suspect]
     Active Substance: IRINOTECAN HYDROCHLORIDE
     Indication: DUCTAL ADENOCARCINOMA OF PANCREAS
     Dosage: 351 MG, QD
     Route: 042
     Dates: start: 20190405

REACTIONS (1)
  - General physical health deterioration [Recovered/Resolved]

NARRATIVE: CASE EVENT DATE: 20190406
